FAERS Safety Report 25487607 (Version 2)
Quarter: 2025Q3

REPORT INFORMATION
  Report Type: Spontaneous
  Country: AU (occurrence: AU)
  Receive Date: 20250627
  Receipt Date: 20250714
  Transmission Date: 20251020
  Serious: Yes (Hospitalization)
  Sender: MYLAN
  Company Number: AU-MYLANLABS-2025M1054185

PATIENT
  Age: 32 Year
  Sex: Male

DRUGS (48)
  1. PREGABALIN [Suspect]
     Active Substance: PREGABALIN
     Indication: Fabry^s disease
     Dosage: 150 MILLIGRAM, HS (AT NIGHT)
     Route: 065
  2. PREGABALIN [Suspect]
     Active Substance: PREGABALIN
     Dosage: 150 MILLIGRAM, HS (AT NIGHT)
  3. PREGABALIN [Suspect]
     Active Substance: PREGABALIN
     Dosage: 150 MILLIGRAM, HS (AT NIGHT)
  4. PREGABALIN [Suspect]
     Active Substance: PREGABALIN
     Dosage: 150 MILLIGRAM, HS (AT NIGHT)
     Route: 065
  5. PREGABALIN [Suspect]
     Active Substance: PREGABALIN
     Dosage: UNK UNK, BID (150 TO 300 MG)
     Route: 065
     Dates: start: 20230919
  6. PREGABALIN [Suspect]
     Active Substance: PREGABALIN
     Dosage: UNK UNK, BID (150 TO 300 MG)
     Dates: start: 20230919
  7. PREGABALIN [Suspect]
     Active Substance: PREGABALIN
     Dosage: UNK UNK, BID (150 TO 300 MG)
     Dates: start: 20230919
  8. PREGABALIN [Suspect]
     Active Substance: PREGABALIN
     Dosage: UNK UNK, BID (150 TO 300 MG)
     Route: 065
     Dates: start: 20230919
  9. PREGABALIN [Suspect]
     Active Substance: PREGABALIN
     Dosage: 50 MILLIGRAM, BID
     Route: 065
     Dates: start: 20231027
  10. PREGABALIN [Suspect]
     Active Substance: PREGABALIN
     Dosage: 50 MILLIGRAM, BID
     Route: 065
     Dates: start: 20231027
  11. PREGABALIN [Suspect]
     Active Substance: PREGABALIN
     Dosage: 50 MILLIGRAM, BID
     Dates: start: 20231027
  12. PREGABALIN [Suspect]
     Active Substance: PREGABALIN
     Dosage: 50 MILLIGRAM, BID
     Dates: start: 20231027
  13. TAPENTADOL [Concomitant]
     Active Substance: TAPENTADOL
     Dosage: 50 MILLIGRAM, BID
     Dates: start: 20230919
  14. TAPENTADOL [Concomitant]
     Active Substance: TAPENTADOL
     Dosage: 50 MILLIGRAM, BID
     Route: 065
     Dates: start: 20230919
  15. TAPENTADOL [Concomitant]
     Active Substance: TAPENTADOL
     Dosage: 50 MILLIGRAM, BID
     Route: 065
     Dates: start: 20230919
  16. TAPENTADOL [Concomitant]
     Active Substance: TAPENTADOL
     Dosage: 50 MILLIGRAM, BID
     Dates: start: 20230919
  17. ACETAMINOPHEN [Concomitant]
     Active Substance: ACETAMINOPHEN
  18. ACETAMINOPHEN [Concomitant]
     Active Substance: ACETAMINOPHEN
     Route: 065
  19. ACETAMINOPHEN [Concomitant]
     Active Substance: ACETAMINOPHEN
     Route: 065
  20. ACETAMINOPHEN [Concomitant]
     Active Substance: ACETAMINOPHEN
  21. BEROCCA [Concomitant]
     Active Substance: VITAMINS
  22. BEROCCA [Concomitant]
     Active Substance: VITAMINS
     Route: 065
  23. BEROCCA [Concomitant]
     Active Substance: VITAMINS
     Route: 065
  24. BEROCCA [Concomitant]
     Active Substance: VITAMINS
  25. ATORVASTATIN [Concomitant]
     Active Substance: ATORVASTATIN
  26. ATORVASTATIN [Concomitant]
     Active Substance: ATORVASTATIN
     Route: 065
  27. ATORVASTATIN [Concomitant]
     Active Substance: ATORVASTATIN
     Route: 065
  28. ATORVASTATIN [Concomitant]
     Active Substance: ATORVASTATIN
  29. OZEMPIC [Concomitant]
     Active Substance: SEMAGLUTIDE
  30. OZEMPIC [Concomitant]
     Active Substance: SEMAGLUTIDE
     Route: 065
  31. OZEMPIC [Concomitant]
     Active Substance: SEMAGLUTIDE
     Route: 065
  32. OZEMPIC [Concomitant]
     Active Substance: SEMAGLUTIDE
  33. DAPAGLIFLOZIN [Concomitant]
     Active Substance: DAPAGLIFLOZIN
  34. DAPAGLIFLOZIN [Concomitant]
     Active Substance: DAPAGLIFLOZIN
     Route: 065
  35. DAPAGLIFLOZIN [Concomitant]
     Active Substance: DAPAGLIFLOZIN
     Route: 065
  36. DAPAGLIFLOZIN [Concomitant]
     Active Substance: DAPAGLIFLOZIN
  37. ALLOPURINOL [Concomitant]
     Active Substance: ALLOPURINOL
  38. ALLOPURINOL [Concomitant]
     Active Substance: ALLOPURINOL
     Route: 065
  39. ALLOPURINOL [Concomitant]
     Active Substance: ALLOPURINOL
     Route: 065
  40. ALLOPURINOL [Concomitant]
     Active Substance: ALLOPURINOL
  41. PREDNISOLONE [Concomitant]
     Active Substance: PREDNISOLONE
  42. PREDNISOLONE [Concomitant]
     Active Substance: PREDNISOLONE
     Route: 065
  43. PREDNISOLONE [Concomitant]
     Active Substance: PREDNISOLONE
     Route: 065
  44. PREDNISOLONE [Concomitant]
     Active Substance: PREDNISOLONE
  45. COLCHICINE [Concomitant]
     Active Substance: COLCHICINE
  46. COLCHICINE [Concomitant]
     Active Substance: COLCHICINE
     Route: 065
  47. COLCHICINE [Concomitant]
     Active Substance: COLCHICINE
     Route: 065
  48. COLCHICINE [Concomitant]
     Active Substance: COLCHICINE

REACTIONS (2)
  - Fabry^s disease [Recovered/Resolved]
  - Condition aggravated [Recovered/Resolved]

NARRATIVE: CASE EVENT DATE: 20231021
